FAERS Safety Report 8594012-4 (Version None)
Quarter: 2012Q3

REPORT INFORMATION
  Report Type: 
  Country: None (occurrence: None)
  Receive Date: 20120814
  Receipt Date: 20120808
  Transmission Date: 20120928
  Serious: Yes (Other)
  Sender: FDA-Public Use
  Company Number: PHHY2012MX069635

PATIENT
  Sex: Female

DRUGS (1)
  1. RASILEZ HCT [Suspect]
     Indication: HYPERTENSION
     Dosage: 0.5 DF (150/12.5MG) DAILY
     Dates: start: 20090923

REACTIONS (7)
  - NOCTURIA [None]
  - DECREASED IMMUNE RESPONSIVENESS [None]
  - OEDEMA PERIPHERAL [None]
  - ANAEMIA [None]
  - BLADDER DISORDER [None]
  - WRONG TECHNIQUE IN DRUG USAGE PROCESS [None]
  - URINARY TRACT INFECTION [None]
